FAERS Safety Report 8814309 (Version 2)
Quarter: 2013Q2

REPORT INFORMATION
  Report Type: Spontaneous
  Country: US (occurrence: US)
  Receive Date: 20120928
  Receipt Date: 20130422
  Transmission Date: 20140414
  Serious: Yes (Other)
  Sender: FDA-Public Use
  Company Number: US-BAYER-2012-100239

PATIENT
  Age: 26 Year
  Sex: Female
  Weight: 47 kg

DRUGS (1)
  1. MIRENA [Suspect]
     Indication: CONTRACEPTION
     Dosage: 20 MCG/24HR, CONT
     Route: 015
     Dates: start: 20120816, end: 20120914

REACTIONS (3)
  - Uterine perforation [Recovered/Resolved]
  - Abdominal pain [Recovered/Resolved]
  - Device dislocation [Recovered/Resolved]
